FAERS Safety Report 10788660 (Version 1)
Quarter: 2015Q1

REPORT INFORMATION
  Report Type: Spontaneous
  Country: US (occurrence: None)
  Receive Date: 20150211
  Receipt Date: 20150211
  Transmission Date: 20150721
  Serious: Yes (Hospitalization)
  Sender: FDA-Public Use
  Company Number: None

PATIENT
  Age: 71 Year
  Sex: Male
  Weight: 67.1 kg

DRUGS (1)
  1. ETOPOSIDE (VP-16) [Suspect]
     Active Substance: ETOPOSIDE
     Dates: start: 20150123

REACTIONS (7)
  - Thrombocytopenia [None]
  - Fatigue [None]
  - Dyspnoea [None]
  - Chest pain [None]
  - Bronchial secretion retention [None]
  - Neutropenia [None]
  - Asthenia [None]

NARRATIVE: CASE EVENT DATE: 20150202
